FAERS Safety Report 6203980-7 (Version None)
Quarter: 2009Q2

REPORT INFORMATION
  Report Type: 
  Country: None (occurrence: None)
  Receive Date: 20090527
  Receipt Date: 20090522
  Transmission Date: 20091009
  Serious: Yes (Death)
  Sender: FDA-Public Use
  Company Number: B0575583A

PATIENT
  Sex: Male

DRUGS (1)
  1. ARRANON [Suspect]
     Dosage: 325MG PER DAY
     Route: 042
     Dates: start: 20090430, end: 20090430

REACTIONS (1)
  - GASTROINTESTINAL HAEMORRHAGE [None]
